FAERS Safety Report 13294377 (Version 1)
Quarter: 2017Q1

REPORT INFORMATION
  Report Type: Spontaneous
  Country: TR (occurrence: TR)
  Receive Date: 20170303
  Receipt Date: 20170303
  Transmission Date: 20170428
  Serious: Yes (Other)
  Sender: FDA-Public Use
  Company Number: TR-TEVA-744281ISR

PATIENT
  Age: 25 Year
  Sex: Female

DRUGS (1)
  1. TETRADOX [Suspect]
     Active Substance: DOXYCYCLINE HYDROCHLORIDE
     Dosage: TETRADOX 100 MG CAPSULE
     Route: 048
     Dates: end: 20170212

REACTIONS (3)
  - Mouth haemorrhage [Recovering/Resolving]
  - Eye disorder [Recovering/Resolving]
  - Vomiting [Recovering/Resolving]

NARRATIVE: CASE EVENT DATE: 201702
